FAERS Safety Report 9447322 (Version 2)
Quarter: 2013Q3

REPORT INFORMATION
  Report Type: Spontaneous
  Country: US (occurrence: US)
  Receive Date: 20130808
  Receipt Date: 20130823
  Transmission Date: 20140515
  Serious: No
  Sender: FDA-Public Use
  Company Number: US-BIOGENIDEC-2013BI072048

PATIENT
  Age: 38 Year
  Sex: Male

DRUGS (3)
  1. AVONEX [Suspect]
     Indication: MULTIPLE SCLEROSIS
     Route: 030
     Dates: start: 20130731, end: 20130731
  2. AVONEX [Suspect]
     Indication: MULTIPLE SCLEROSIS
     Route: 030
  3. IBUPROFEN [Concomitant]
     Indication: PREMEDICATION
     Dates: start: 20130731

REACTIONS (3)
  - Incorrect dose administered [Recovered/Resolved]
  - Influenza [Recovered/Resolved]
  - Influenza like illness [Recovered/Resolved]
